FAERS Safety Report 24199528 (Version 1)
Quarter: 2024Q3

REPORT INFORMATION
  Report Type: Spontaneous
  Country: US (occurrence: None)
  Receive Date: 20240809
  Receipt Date: 20240809
  Transmission Date: 20241016
  Serious: No
  Sender: Public
  Company Number: None

PATIENT
  Age: 53 Year
  Sex: Female

DRUGS (1)
  1. AMBRISENTAN [Suspect]
     Active Substance: AMBRISENTAN
     Indication: Pulmonary arterial hypertension
     Dosage: 5MG QD ORAL?
     Route: 048
     Dates: start: 20240716, end: 20240730

REACTIONS (4)
  - Cough [None]
  - Dyspnoea [None]
  - Fatigue [None]
  - Peripheral swelling [None]

NARRATIVE: CASE EVENT DATE: 20240730
